FAERS Safety Report 4374151-4 (Version None)
Quarter: 2004Q2

REPORT INFORMATION
  Report Type: 
  Country: None (occurrence: None)
  Receive Date: 20040604
  Receipt Date: 20040527
  Transmission Date: 20050107
  Serious: Yes (Hospitalization)
  Sender: FDA-Public Use
  Company Number: US-JNJFOC-20040506875

PATIENT
  Age: 72 Year
  Sex: Male

DRUGS (4)
  1. RISPERDAL [Suspect]
     Indication: SCHIZOPHRENIA
     Dosage: 2 MG, 2 IN 1 DAY, ORAL
     Route: 048
  2. LORTAB [Concomitant]
  3. DOCUSATE (DOCUSATE) [Concomitant]
  4. BISACODYL (BISACODYL) [Concomitant]

REACTIONS (2)
  - HAEMATURIA [None]
  - URINARY TRACT INFECTION [None]
